FAERS Safety Report 6842433-X (Version None)
Quarter: 2010Q3

REPORT INFORMATION
  Report Type: 
  Country: None (occurrence: None)
  Receive Date: 20100714
  Receipt Date: 20070730
  Transmission Date: 20110219
  Serious: No
  Sender: FDA-Public Use
  Company Number: US-PFIZER INC-2007062817

PATIENT
  Sex: Female

DRUGS (4)
  1. CHANTIX [Suspect]
     Indication: SMOKING CESSATION THERAPY
     Dates: start: 20070101
  2. NICOTROL [Suspect]
     Indication: SMOKING CESSATION THERAPY
  3. VALSARTAN [Concomitant]
     Indication: HYPERTENSION
  4. COMBIPATCH [Concomitant]
     Indication: HOT FLUSH
     Dosage: 0.05/0.14MG

REACTIONS (4)
  - DIZZINESS [None]
  - DRUG INEFFECTIVE [None]
  - DYSGEUSIA [None]
  - IRRITABILITY [None]
